FAERS Safety Report 8672198 (Version 3)
Quarter: 2012Q4

REPORT INFORMATION
  Report Type: 
  Country: GB (occurrence: GB)
  Receive Date: 20120719
  Receipt Date: 20121003
  Transmission Date: 20130627
  Serious: Yes (Congenital Anomaly)
  Sender: FDA-Public Use
  Company Number: GB-MSD-1207GBR003029

PATIENT

DRUGS (3)
  1. ISENTRESS [Suspect]
     Dosage: UNK
     Route: 064
     Dates: start: 2012
  2. CELSENTRI [Suspect]
     Dosage: UNK
     Route: 064
     Dates: start: 2012
  3. [THERAPY UNSPECIFIED] [Suspect]
     Route: 064

REACTIONS (2)
  - Polydactyly [Recovered/Resolved]
  - Foetal exposure during pregnancy [Recovered/Resolved]
